FAERS Safety Report 25955025 (Version 1)
Quarter: 2025Q4

REPORT INFORMATION
  Report Type: Spontaneous
  Country: US (occurrence: US)
  Receive Date: 20251024
  Receipt Date: 20251024
  Transmission Date: 20260118
  Serious: Yes (Other)
  Sender: PIRAMAL
  Company Number: US-PIRAMAL CRITICAL CARE LIMITED-2025-PPL-000587

PATIENT

DRUGS (1)
  1. GABLOFEN [Suspect]
     Active Substance: BACLOFEN
     Indication: Product used for unknown indication
     Dosage: 139 MICROGRAM, QD
     Route: 037

REACTIONS (3)
  - Respiratory tract infection [Recovered/Resolved]
  - Skin injury [Recovered/Resolved]
  - Cough [Recovered/Resolved]
